FAERS Safety Report 9487199 (Version 1)
Quarter: 2013Q3

REPORT INFORMATION
  Report Type: Spontaneous
  Country: US (occurrence: US)
  Receive Date: 20130829
  Receipt Date: 20130829
  Transmission Date: 20140515
  Serious: Yes (Other)
  Sender: FDA-Public Use
  Company Number: US-TEVA-429121USA

PATIENT
  Age: 25 Year
  Sex: Female
  Weight: 70.37 kg

DRUGS (3)
  1. PARAGARD 380A [Suspect]
     Indication: CONTRACEPTION
     Route: 015
     Dates: start: 20130713, end: 20130729
  2. COLACE [Concomitant]
     Indication: CONSTIPATION
  3. PRENATAL VITAMINS [Concomitant]
     Indication: VITAMIN SUPPLEMENTATION

REACTIONS (3)
  - Device dislocation [Recovered/Resolved]
  - Abdominal pain [Unknown]
  - Dyspareunia [Unknown]
